FAERS Safety Report 11803484 (Version 1)
Quarter: 2015Q4

REPORT INFORMATION
  Report Type: Spontaneous
  Country: US (occurrence: None)
  Receive Date: 20151203
  Receipt Date: 20151203
  Transmission Date: 20160305
  Serious: No
  Sender: FDA-Public Use
  Company Number: None

PATIENT
  Age: 70 Year
  Sex: Male

DRUGS (4)
  1. ZYTIGA [Suspect]
     Active Substance: ABIRATERONE ACETATE
     Indication: PROSTATE CANCER
     Route: 048
     Dates: start: 20151111, end: 20151125
  2. TAMSULOSIN [Concomitant]
     Active Substance: TAMSULOSIN
  3. CALCIUM [Concomitant]
     Active Substance: CALCIUM
  4. DEXAMETHASON [Concomitant]
     Active Substance: DEXAMETHASONE

REACTIONS (4)
  - Fatigue [None]
  - Diarrhoea [None]
  - Headache [None]
  - Cough [None]

NARRATIVE: CASE EVENT DATE: 20151123
